FAERS Safety Report 8444598-5 (Version None)
Quarter: 2012Q2

REPORT INFORMATION
  Report Type: 
  Country: None (occurrence: None)
  Receive Date: 20120611
  Receipt Date: 20120529
  Transmission Date: 20120825
  Serious: Yes (Hospitalization)
  Sender: FDA-Public Use
  Company Number: DSA_57712_2012

PATIENT
  Age: 67 Year
  Sex: Female

DRUGS (2)
  1. METRONIDAZOLE [Suspect]
     Indication: BILIARY SEPSIS
     Dosage: 500 MG, INTRAVENOUS (250 MG, ONCE, ORAL)
     Route: 048
  2. METRONIDAZOLE [Suspect]
     Indication: BILE DUCT STONE
     Dosage: 500 MG, INTRAVENOUS (250 MG, ONCE, ORAL)
     Route: 048

REACTIONS (10)
  - TYPE I HYPERSENSITIVITY [None]
  - DRUG RASH WITH EOSINOPHILIA AND SYSTEMIC SYMPTOMS [None]
  - NAUSEA [None]
  - ALTERED STATE OF CONSCIOUSNESS [None]
  - BILIARY SEPSIS [None]
  - NO REACTION ON PREVIOUS EXPOSURE TO DRUG [None]
  - VOMITING [None]
  - BILE DUCT STONE [None]
  - BODY TEMPERATURE INCREASED [None]
  - PRESYNCOPE [None]
